FAERS Safety Report 19487429 (Version 2)
Quarter: 2021Q3

REPORT INFORMATION
  Report Type: Spontaneous
  Country: JP (occurrence: JP)
  Receive Date: 20210702
  Receipt Date: 20210706
  Transmission Date: 20211014
  Serious: Yes (Death, Other)
  Sender: FDA-Public Use
  Company Number: JP-ELI_LILLY_AND_COMPANY-JP202104013694

PATIENT
  Age: 86 Year
  Sex: Female

DRUGS (14)
  1. BAKTAR [Concomitant]
     Active Substance: SULFAMETHOXAZOLE\TRIMETHOPRIM
     Indication: PROPHYLAXIS
     Dosage: 2 MG, 2/W
     Route: 048
     Dates: start: 20210227
  2. TARLIGE [Suspect]
     Active Substance: MIROGABALIN BESYLATE
     Indication: OSTEOARTHRITIS
     Dosage: 5 MG, DAILY
     Route: 048
  3. PREDNISOLONE. [Concomitant]
     Active Substance: PREDNISOLONE
     Indication: OSTEOARTHRITIS
     Dosage: 1 MG, DAILY
     Route: 048
  4. TARLIGE [Suspect]
     Active Substance: MIROGABALIN BESYLATE
     Indication: RHEUMATOID ARTHRITIS
  5. PREDONINE [Concomitant]
     Active Substance: PREDNISOLONE
     Indication: OSTEOARTHRITIS
     Dosage: 5 MG, DAILY
     Route: 048
  6. PREDONINE [Concomitant]
     Active Substance: PREDNISOLONE
     Indication: RHEUMATOID ARTHRITIS
  7. PREDNISOLONE. [Concomitant]
     Active Substance: PREDNISOLONE
     Indication: RHEUMATOID ARTHRITIS
  8. LANSOPRAZOLE. [Concomitant]
     Active Substance: LANSOPRAZOLE
     Dosage: 15 MG, DAILY
     Route: 048
  9. GLACTIV [Concomitant]
     Active Substance: SITAGLIPTIN
     Indication: DIABETES MELLITUS
     Dosage: 50 MG, DAILY
     Route: 048
  10. SENNOSIDE A [Concomitant]
     Active Substance: SENNOSIDE A
     Indication: CONSTIPATION
     Dosage: 24 MG, PRN
     Route: 048
  11. DULOXETINE HYDROCHLORIDE. [Suspect]
     Active Substance: DULOXETINE HYDROCHLORIDE
     Indication: OSTEOARTHRITIS
     Dosage: 60 MG, DAILY
     Route: 048
  12. ALFACALCIDOL [Concomitant]
     Active Substance: ALFACALCIDOL
     Indication: PROPHYLAXIS
     Dosage: 0.25 UG, DAILY
     Route: 048
  13. CELECOXIB. [Concomitant]
     Active Substance: CELECOXIB
     Indication: OSTEOARTHRITIS
     Dosage: 100 MG, DAILY
     Route: 048
  14. CARBOCISTEINE [Concomitant]
     Active Substance: CARBOCYSTEINE
     Indication: PRODUCTIVE COUGH
     Dosage: 1500 MG, DAILY
     Route: 048

REACTIONS (4)
  - Death [Fatal]
  - Rib fracture [Unknown]
  - Dizziness [Recovered/Resolved]
  - Fall [Recovered/Resolved]

NARRATIVE: CASE EVENT DATE: 20210412
